FAERS Safety Report 20384693 (Version 1)
Quarter: 2022Q1

REPORT INFORMATION
  Report Type: Spontaneous
  Country: US (occurrence: None)
  Receive Date: 20220127
  Receipt Date: 20220127
  Transmission Date: 20220423
  Serious: Yes (Hospitalization)
  Sender: FDA-Public Use
  Company Number: None

PATIENT
  Sex: Female

DRUGS (1)
  1. KYNMOBI [Suspect]
     Active Substance: APOMORPHINE HYDROCHLORIDE
     Indication: Parkinson^s disease
     Dosage: FREQUENCY : AS NEEDED;?OTHER ROUTE : SUBLINGUAL ; FREQUENCY= AS NEEDED FOR OFF EPISODES.?
     Route: 050
     Dates: start: 202110, end: 202110

REACTIONS (2)
  - COVID-19 [None]
  - Therapy interrupted [None]
